FAERS Safety Report 5112450-9 (Version None)
Quarter: 2006Q3

REPORT INFORMATION
  Report Type: 
  Country: None (occurrence: None)
  Receive Date: 20060922
  Receipt Date: 20060829
  Transmission Date: 20061208
  Serious: Yes (Hospitalization)
  Sender: FDA-Public Use
  Company Number: HQWYE183831AUG06

PATIENT
  Sex: Female

DRUGS (5)
  1. ENBREL [Suspect]
     Indication: RHEUMATOID ARTHRITIS
     Route: 058
     Dates: start: 20050418, end: 20060110
  2. ENBREL [Suspect]
     Route: 058
     Dates: start: 20060101, end: 20060715
  3. PARIET [Suspect]
     Indication: DRUG USE FOR UNKNOWN INDICATION
     Dosage: UNKNOWN
     Route: 048
     Dates: start: 20051205
  4. LOXONIN [Concomitant]
     Dosage: UNKNOWN
     Route: 048
  5. CYTOTEC [Concomitant]
     Dosage: UNKNOWN
     Route: 048

REACTIONS (6)
  - CHEST PAIN [None]
  - FURUNCLE [None]
  - PLEURAL EFFUSION [None]
  - PYREXIA [None]
  - SCAB [None]
  - TUBERCULOUS PLEURISY [None]
